FAERS Safety Report 6363909-8 (Version None)
Quarter: 2009Q3

REPORT INFORMATION
  Report Type: 
  Country: None (occurrence: None)
  Receive Date: 20090919
  Receipt Date: 20090708
  Transmission Date: 20100115
  Serious: No
  Sender: FDA-Public Use
  Company Number: US-ABBOTT-09P-163-0584327-00

PATIENT
  Sex: Female
  Weight: 47.67 kg

DRUGS (4)
  1. HUMIRA [Suspect]
     Indication: PSORIASIS
     Dates: start: 20090501
  2. HUMIRA [Suspect]
  3. OCELLA [Concomitant]
     Indication: CONTRACEPTION
     Route: 048
  4. ANTI-DEPRESSANT ALSO USED FOR ANTI-ANXIETY [Concomitant]
     Indication: ANXIETY

REACTIONS (5)
  - DRUG DOSE OMISSION [None]
  - INJECTION SITE ERYTHEMA [None]
  - INJECTION SITE INDURATION [None]
  - INJECTION SITE PRURITUS [None]
  - INJECTION SITE REACTION [None]
